FAERS Safety Report 14352895 (Version 3)
Quarter: 2018Q1

REPORT INFORMATION
  Report Type: Spontaneous
  Country: US (occurrence: US)
  Receive Date: 20180104
  Receipt Date: 20180227
  Transmission Date: 20180509
  Serious: Yes (Death, Hospitalization, Other)
  Sender: FDA-Public Use
  Company Number: US-INTERCEPT-PMOCA2017001753

PATIENT

DRUGS (4)
  1. AZATHIOPRINE. [Concomitant]
     Active Substance: AZATHIOPRINE
  2. LANTUS [Concomitant]
     Active Substance: INSULIN GLARGINE
     Indication: TYPE 2 DIABETES MELLITUS
  3. OCALIVA [Suspect]
     Active Substance: OBETICHOLIC ACID
     Indication: PRIMARY BILIARY CHOLANGITIS
     Dosage: 5 MG, QD
     Route: 048
     Dates: start: 20171116, end: 20171226
  4. URSODIOL. [Concomitant]
     Active Substance: URSODIOL

REACTIONS (13)
  - Hepatic failure [Unknown]
  - Jaundice [Not Recovered/Not Resolved]
  - Decreased appetite [Not Recovered/Not Resolved]
  - Pruritus [Unknown]
  - End stage renal disease [Unknown]
  - Altered state of consciousness [Not Recovered/Not Resolved]
  - Miosis [Unknown]
  - Hypersomnia [Not Recovered/Not Resolved]
  - Gastric ulcer [Unknown]
  - Treatment noncompliance [Unknown]
  - Oropharyngeal pain [Unknown]
  - Concomitant disease progression [Unknown]
  - Death [Fatal]

NARRATIVE: CASE EVENT DATE: 2018
